FAERS Safety Report 13465072 (Version 3)
Quarter: 2017Q2

REPORT INFORMATION
  Report Type: Report from Study
  Country: None (occurrence: US)
  Receive Date: 20170421
  Receipt Date: 20170517
  Transmission Date: 20170830
  Serious: Yes (Other)
  Sender: FDA-Public Use
  Company Number: US-ABBVIE-17K-163-1836337-00

PATIENT
  Age: 57 Year
  Sex: Male

DRUGS (9)
  1. COLESTIPOL [Concomitant]
     Active Substance: COLESTIPOL
     Indication: BLOOD CHOLESTEROL INCREASED
  2. VITAMIN D WITH CALCIUM [Concomitant]
     Active Substance: CALCIUM\CHOLECALCIFEROL
     Indication: PRODUCT USED FOR UNKNOWN INDICATION
  3. HUMIRA [Suspect]
     Active Substance: ADALIMUMAB
     Dosage: TWO WEEKS LATER
     Route: 058
     Dates: start: 2016, end: 2016
  4. DAILY BODY RESORE PROBIOTIC [Concomitant]
     Indication: PRODUCT USED FOR UNKNOWN INDICATION
  5. HUMIRA [Suspect]
     Active Substance: ADALIMUMAB
     Route: 058
     Dates: start: 201608, end: 201611
  6. MERCAPTOPURINE. [Concomitant]
     Active Substance: MERCAPTOPURINE
     Indication: PRODUCT USED FOR UNKNOWN INDICATION
     Dates: end: 20161201
  7. HUMIRA [Suspect]
     Active Substance: ADALIMUMAB
     Route: 058
     Dates: start: 201612
  8. FISH OIL [Concomitant]
     Active Substance: FISH OIL
     Indication: PRODUCT USED FOR UNKNOWN INDICATION
  9. HUMIRA [Suspect]
     Active Substance: ADALIMUMAB
     Indication: CROHN^S DISEASE
     Dosage: DAY 1
     Route: 058
     Dates: start: 201607, end: 201607

REACTIONS (26)
  - Diarrhoea [Not Recovered/Not Resolved]
  - Haemorrhoidal haemorrhage [Recovered/Resolved]
  - Basal cell carcinoma [Recovering/Resolving]
  - Post procedural complication [Unknown]
  - Anxiety [Unknown]
  - Depressed mood [Unknown]
  - Dental implantation [Unknown]
  - Diarrhoea [Unknown]
  - Pruritus [Unknown]
  - Oropharyngeal pain [Unknown]
  - Abdominal pain upper [Unknown]
  - Insomnia [Unknown]
  - Flatulence [Recovered/Resolved]
  - Injection site pain [Unknown]
  - Fatigue [Unknown]
  - Weight increased [Unknown]
  - Road traffic accident [Unknown]
  - Squamous cell carcinoma of skin [Recovered/Resolved]
  - Dry skin [Recovering/Resolving]
  - Pyrexia [Unknown]
  - Rectal haemorrhage [Unknown]
  - Muscle strain [Recovered/Resolved]
  - Viral upper respiratory tract infection [Recovered/Resolved]
  - Viral upper respiratory tract infection [Recovered/Resolved]
  - Paraesthesia oral [Unknown]
  - Platelet count decreased [Unknown]

NARRATIVE: CASE EVENT DATE: 201611
